FAERS Safety Report 4455552-2 (Version None)
Quarter: 2004Q3

REPORT INFORMATION
  Report Type: 
  Country: None (occurrence: None)
  Receive Date: 20040917
  Receipt Date: 20040902
  Transmission Date: 20050211
  Serious: Yes (Disabling)
  Sender: FDA-Public Use
  Company Number: 20040900391

PATIENT
  Age: 1 Month
  Sex: Female

DRUGS (1)
  1. REGLAN [Suspect]
     Dates: start: 20020101

REACTIONS (2)
  - CONVULSION [None]
  - DEVELOPMENTAL DELAY [None]
